FAERS Safety Report 8462623-2 (Version None)
Quarter: 2012Q2

REPORT INFORMATION
  Report Type: 
  Country: None (occurrence: None)
  Receive Date: 20120625
  Receipt Date: 20120621
  Transmission Date: 20120825
  Serious: Yes (Life-Threatening)
  Sender: FDA-Public Use
  Company Number: NO-ASTRAZENECA-2012SE41707

PATIENT
  Sex: Female

DRUGS (6)
  1. METOPROLOL SUCCINATE [Concomitant]
     Indication: ACUTE MYOCARDIAL INFARCTION
     Route: 048
     Dates: start: 20120502
  2. SIMVASTATIN [Concomitant]
     Indication: ACUTE MYOCARDIAL INFARCTION
     Route: 048
     Dates: start: 20120502
  3. BRILINTA [Suspect]
     Indication: STENT EMBOLISATION
     Route: 048
     Dates: start: 20120601
  4. ASPIRIN [Interacting]
     Indication: ACUTE MYOCARDIAL INFARCTION
     Route: 048
     Dates: start: 20120502
  5. HEPARIN [Interacting]
  6. INTEGRILIN [Interacting]
     Indication: STENT EMBOLISATION
     Dosage: 9 ML PER HOUR FOR 18 HOURS
     Route: 041
     Dates: start: 20120601, end: 20120602

REACTIONS (2)
  - GASTROINTESTINAL HAEMORRHAGE [None]
  - DRUG INTERACTION [None]
